FAERS Safety Report 21819070 (Version 5)
Quarter: 2023Q1

REPORT INFORMATION
  Report Type: Spontaneous
  Country: SK (occurrence: SK)
  Receive Date: 20230104
  Receipt Date: 20230130
  Transmission Date: 20230418
  Serious: Yes (Hospitalization, Other)
  Sender: FDA-Public Use
  Company Number: SK-PFIZER INC-PV202300001060

PATIENT
  Age: 27 Year
  Sex: Male
  Weight: 70 kg

DRUGS (3)
  1. CLINDAMYCIN [Suspect]
     Active Substance: CLINDAMYCIN
     Indication: Face oedema
     Dosage: 300 MG, 3X/DAY (300 MG, EVERY 8 HOURS (2X150 MG TABLETS EVERY 8 HOURS))
     Route: 048
     Dates: start: 20221108, end: 20221114
  2. CLINDAMYCIN [Suspect]
     Active Substance: CLINDAMYCIN
     Indication: Tooth extraction
  3. CLINDAMYCIN [Suspect]
     Active Substance: CLINDAMYCIN
     Indication: Swelling face

REACTIONS (9)
  - Duodenal ulcer [Recovering/Resolving]
  - Diarrhoea haemorrhagic [Recovered/Resolved]
  - Clostridial infection [Recovering/Resolving]
  - Syncope [Unknown]
  - Fatigue [Not Recovered/Not Resolved]
  - Clostridium test positive [Unknown]
  - Dizziness [Recovering/Resolving]
  - Haemoglobin decreased [Recovered/Resolved]
  - Abdominal rigidity [Recovering/Resolving]

NARRATIVE: CASE EVENT DATE: 20221101
